FAERS Safety Report 5845977-2 (Version None)
Quarter: 2008Q3

REPORT INFORMATION
  Report Type: 
  Country: None (occurrence: None)
  Receive Date: 20080813
  Receipt Date: 20080804
  Transmission Date: 20090109
  Serious: Yes (Other)
  Sender: FDA-Public Use
  Company Number: 2008AL003896

PATIENT
  Age: 49 Year
  Sex: Male
  Weight: 113.3993 kg

DRUGS (15)
  1. DIGOXIN [Suspect]
     Dosage: 0.25MG, QOD, PO
     Route: 048
     Dates: start: 20030630, end: 20080407
  2. METOPROLOL TARTRATE [Concomitant]
  3. RANITIDINE [Concomitant]
  4. LISINOPRIL [Concomitant]
  5. CRESTOR [Concomitant]
  6. TRICOR [Concomitant]
  7. HYDROCODONE BITARTRATE AND ACETAMINOPHEN [Concomitant]
  8. PROMETHAZINE [Concomitant]
  9. CLINDAMYCIN [Concomitant]
  10. TRIAMTERENE AND HYDROCHLOROTHIAZIDE [Concomitant]
  11. METFORMIN HCL [Concomitant]
  12. WELLBUTRIN [Concomitant]
  13. TOPROL-XL [Concomitant]
  14. ZOLOFT [Concomitant]
  15. ALPRAZOLAM [Concomitant]

REACTIONS (11)
  - ABDOMINAL PAIN UPPER [None]
  - ALBUMIN URINE ABSENT [None]
  - BLOOD TRIGLYCERIDES INCREASED [None]
  - CHEST PAIN [None]
  - DIZZINESS [None]
  - FATIGUE [None]
  - HEADACHE [None]
  - HIGH DENSITY LIPOPROTEIN DECREASED [None]
  - RENAL DISORDER [None]
  - URINE ALBUMIN/CREATININE RATIO INCREASED [None]
  - VOMITING [None]
